FAERS Safety Report 16321056 (Version 3)
Quarter: 2021Q1

REPORT INFORMATION
  Report Type: Spontaneous
  Country: US (occurrence: US)
  Receive Date: 20190516
  Receipt Date: 20210121
  Transmission Date: 20210419
  Serious: Yes (Hospitalization, Other)
  Sender: FDA-Public Use
  Company Number: US-GILEAD-2019-0407712

PATIENT
  Age: 44 Year
  Sex: Female
  Weight: 62.59 kg

DRUGS (39)
  1. FLOVENT [Concomitant]
     Active Substance: FLUTICASONE PROPIONATE
  2. TRUVADA [Suspect]
     Active Substance: EMTRICITABINE\TENOFOVIR DISOPROXIL FUMARATE
     Indication: HIV INFECTION
     Dosage: UNK
     Route: 048
     Dates: start: 20130104, end: 201402
  3. DICYCLOMINE CO [Concomitant]
  4. BENZONATATE. [Concomitant]
     Active Substance: BENZONATATE
  5. TAMIFLU [Concomitant]
     Active Substance: OSELTAMIVIR PHOSPHATE
  6. MECLIZINE [Concomitant]
     Active Substance: MECLIZINE HYDROCHLORIDE
  7. LEVOCETIRIZINE [Concomitant]
     Active Substance: LEVOCETIRIZINE
  8. CIPROFLOXACIN. [Concomitant]
     Active Substance: CIPROFLOXACIN
  9. BUTALBITAL AND ACETAMINOPHEN [Concomitant]
     Active Substance: ACETAMINOPHEN\BUTALBITAL
  10. CLINDAMYCIN. [Concomitant]
     Active Substance: CLINDAMYCIN
  11. LOPERAMIDE [Concomitant]
     Active Substance: LOPERAMIDE
  12. CYPROHEPTADINE. [Concomitant]
     Active Substance: CYPROHEPTADINE
  13. TIZANIDINE. [Concomitant]
     Active Substance: TIZANIDINE
  14. ONDANSETRON [Concomitant]
     Active Substance: ONDANSETRON
  15. DOCQLACE [Concomitant]
     Active Substance: DOCUSATE SODIUM
  16. LUNESTA [Concomitant]
     Active Substance: ESZOPICLONE
  17. COMPLERA [Suspect]
     Active Substance: EMTRICITABINE\RILPIVIRINE HYDROCHLORIDE\TENOFOVIR DISOPROXIL FUMARATE
     Indication: HIV INFECTION
     Dosage: UNK
     Route: 048
     Dates: start: 20140224, end: 2016
  18. LOSARTAN. [Concomitant]
     Active Substance: LOSARTAN
  19. MELOXICAM. [Concomitant]
     Active Substance: MELOXICAM
  20. FERRALET [FERROUS GLUCONATE] [Concomitant]
  21. NEXIUM I.V. [Concomitant]
     Active Substance: ESOMEPRAZOLE SODIUM
  22. IBUPROFEN. [Concomitant]
     Active Substance: IBUPROFEN
  23. SUMATRIPTAN. [Concomitant]
     Active Substance: SUMATRIPTAN
  24. BACTRIM [Concomitant]
     Active Substance: SULFAMETHOXAZOLE\TRIMETHOPRIM
  25. NAPROXEN SODIUM. [Concomitant]
     Active Substance: NAPROXEN SODIUM
  26. PRAVASTATIN. [Concomitant]
     Active Substance: PRAVASTATIN
  27. HCTZ [Concomitant]
     Active Substance: HYDROCHLOROTHIAZIDE
  28. CEPHALEXINE [Concomitant]
     Active Substance: CEPHALEXIN
  29. KETOROLAC [Concomitant]
     Active Substance: KETOROLAC TROMETHAMINE
  30. VALACYCLOVIR [Concomitant]
     Active Substance: VALACYCLOVIR HYDROCHLORIDE
  31. CYCLOBENZAPRINE. [Concomitant]
     Active Substance: CYCLOBENZAPRINE
  32. ESTRADIOL. [Concomitant]
     Active Substance: ESTRADIOL
  33. METRONIDAZOLE. [Concomitant]
     Active Substance: METRONIDAZOLE
  34. BRIOSCHI [Concomitant]
  35. ESOMEPRAZOLE. [Concomitant]
     Active Substance: ESOMEPRAZOLE MAGNESIUM
  36. BACLOFEN. [Concomitant]
     Active Substance: BACLOFEN
  37. AMLODIPINE BESYLATE. [Concomitant]
     Active Substance: AMLODIPINE BESYLATE
  38. TRAMADOL. [Concomitant]
     Active Substance: TRAMADOL
  39. FUROSEMIDE. [Concomitant]
     Active Substance: FUROSEMIDE

REACTIONS (10)
  - Emotional distress [Not Recovered/Not Resolved]
  - Anhedonia [Not Recovered/Not Resolved]
  - Acidosis hyperchloraemic [Not Recovered/Not Resolved]
  - Fanconi syndrome acquired [Not Recovered/Not Resolved]
  - Pain [Not Recovered/Not Resolved]
  - Economic problem [Unknown]
  - Renal failure [Not Recovered/Not Resolved]
  - Chronic kidney disease [Unknown]
  - Anxiety [Not Recovered/Not Resolved]
  - Chronic kidney disease [Not Recovered/Not Resolved]

NARRATIVE: CASE EVENT DATE: 2014
